FAERS Safety Report 6217487-4 (Version None)
Quarter: 2009Q2

REPORT INFORMATION
  Report Type: 
  Country: None (occurrence: None)
  Receive Date: 20090608
  Receipt Date: 20081125
  Transmission Date: 20091009
  Serious: No
  Sender: FDA-Public Use
  Company Number: A0758335A

PATIENT
  Age: 23 Year
  Sex: Female

DRUGS (2)
  1. WELLBUTRIN XL [Suspect]
     Indication: DEPRESSION
     Dosage: 300MG PER DAY
     Route: 048
     Dates: start: 20081008
  2. YAZ [Concomitant]

REACTIONS (4)
  - FATIGUE [None]
  - LYMPH NODE PAIN [None]
  - LYMPHADENOPATHY [None]
  - MALAISE [None]
